FAERS Safety Report 14824296 (Version 2)
Quarter: 2018Q2

REPORT INFORMATION
  Report Type: Spontaneous
  Country: IN (occurrence: IN)
  Receive Date: 20180429
  Receipt Date: 20180619
  Transmission Date: 20180711
  Serious: Yes (Other)
  Sender: FDA-Public Use
  Company Number: IN-DRREDDYS-USA/IND/18/0098185

PATIENT
  Age: 53 Year
  Sex: Female

DRUGS (14)
  1. RANITIDINE. [Concomitant]
     Active Substance: RANITIDINE
     Indication: PRODUCT USED FOR UNKNOWN INDICATION
     Dosage: RANITIDINE 50 MG IN 100 ML NORMAL SALINE ON DAY 1 AND DAY 2
     Route: 065
  2. DEXTROSE. [Concomitant]
     Active Substance: DEXTROSE
     Indication: PRODUCT USED FOR UNKNOWN INDICATION
     Dosage: INJ. CYCLOPHOSPHAMIDE 1GM I.V INFUSION IN 500 ML D5W
     Route: 042
  3. DOXORUBICIN [Suspect]
     Active Substance: DOXORUBICIN
     Indication: INVASIVE DUCTAL BREAST CARCINOMA
     Route: 042
  4. AVIL [Concomitant]
     Active Substance: PHENIRAMINE
     Indication: PRODUCT USED FOR UNKNOWN INDICATION
     Dosage: INJ. AVIL (PHENIRAMINE (22.75 MG) IN 500 ML D5 INFUSION
     Route: 065
  5. GRANULOCYTE COLONY-STIMULATING FACTOR [Concomitant]
     Active Substance: GRANULOCYTE COLONY-STIMULATING FACTOR NOS
     Indication: PRODUCT USED FOR UNKNOWN INDICATION
     Route: 058
  6. APREPITANT. [Concomitant]
     Active Substance: APREPITANT
     Indication: PRODUCT USED FOR UNKNOWN INDICATION
     Dosage: ON DAYS 1, 2 AND 3
     Route: 048
  7. PALONOSETRON. [Concomitant]
     Active Substance: PALONOSETRON HYDROCHLORIDE
     Indication: PRODUCT USED FOR UNKNOWN INDICATION
     Route: 065
  8. CYCLOPHOSPHAMIDE. [Suspect]
     Active Substance: CYCLOPHOSPHAMIDE
     Indication: INVASIVE DUCTAL BREAST CARCINOMA
     Dosage: CYCLOPHOSPHAMIDE 1GM I.V INFUSION IN 500 ML D5W
     Route: 041
  9. DIPEPTIVEN [Concomitant]
     Active Substance: ALANYL GLUTAMINE
     Indication: PRODUCT USED FOR UNKNOWN INDICATION
     Dosage: (L-ALANINE 8.2 G, L-GLUTAMINE 13.46 G) 100 ML IV SLOW INFUSION
     Route: 042
  10. ONDANSETRON [Concomitant]
     Active Substance: ONDANSETRON
     Indication: PRODUCT USED FOR UNKNOWN INDICATION
     Route: 065
  11. DEXTROSE. [Concomitant]
     Active Substance: DEXTROSE
     Dosage: INJ. DOXORUBICIN 80 MG I.V INFUSION IN 500 ML D5W
  12. DEXAMETHASONE. [Concomitant]
     Active Substance: DEXAMETHASONE
     Indication: PRODUCT USED FOR UNKNOWN INDICATION
     Route: 042
  13. DEXTROSE. [Concomitant]
     Active Substance: DEXTROSE
     Dosage: INJ. AVIL (PHENIRAMINE (22.75 MG) IN 500 ML D5 INFUSION
  14. NORMAL SALINE [Concomitant]
     Active Substance: SODIUM CHLORIDE
     Indication: PRODUCT USED FOR UNKNOWN INDICATION
     Dosage: RANITIDINE 50 MG IN 100 ML NORMAL SALINE ON DAY 1 AND DAY 2.
     Route: 042

REACTIONS (2)
  - Type IV hypersensitivity reaction [Recovered/Resolved]
  - Lacrimation increased [Recovered/Resolved]
